FAERS Safety Report 6296227-7 (Version None)
Quarter: 2009Q3

REPORT INFORMATION
  Report Type: 
  Country: None (occurrence: None)
  Receive Date: 20090804
  Receipt Date: 20090728
  Transmission Date: 20100115
  Serious: Yes (Other)
  Sender: FDA-Public Use
  Company Number: US-PFIZER INC-2009222895

PATIENT
  Sex: Female
  Weight: 81.646 kg

DRUGS (8)
  1. DETROL LA [Suspect]
     Indication: HYPERTONIC BLADDER
     Dosage: 4 MG, 1X/DAY
     Dates: start: 20070101
  2. PROTONIX [Concomitant]
     Dosage: UNK
  3. LOZOL [Concomitant]
     Dosage: 1.25 MG, UNK
  4. PLAVIX [Concomitant]
     Dosage: 75 MG, 1X/DAY
  5. NORVASC [Concomitant]
     Dosage: UNK
  6. FOLIC ACID [Concomitant]
     Dosage: 1 MG, 1X/DAY
  7. SYNTHROID [Concomitant]
     Dosage: 15 UG, 3X/DAY
  8. NIASPAN [Concomitant]
     Dosage: 500 MG, 1X/DAY

REACTIONS (3)
  - MICTURITION URGENCY [None]
  - SPINAL FUSION SURGERY [None]
  - TERMINAL INSOMNIA [None]
